FAERS Safety Report 4448364-7 (Version None)
Quarter: 2004Q3

REPORT INFORMATION
  Report Type: 
  Country: None (occurrence: None)
  Receive Date: 20040910
  Receipt Date: 20040910
  Transmission Date: 20050211
  Serious: Yes (Life-Threatening, Hospitalization)
  Sender: FDA-Public Use
  Company Number: None

PATIENT
  Age: 33 Year
  Sex: Female
  Weight: 64.4108 kg

DRUGS (2)
  1. FOLLISTIM [Suspect]
     Indication: INFERTILITY
     Dosage: 75 ONCE A DAY SUBCUTANEOUS
     Route: 058
     Dates: start: 20031020, end: 20031025
  2. REPRONEX [Suspect]
     Dosage: 75 ONCE A DAY SUBCUTANEOUS
     Route: 058

REACTIONS (3)
  - JUGULAR VEIN THROMBOSIS [None]
  - OVARIAN HYPERSTIMULATION SYNDROME [None]
  - VENOUS OCCLUSION [None]
